FAERS Safety Report 9049602 (Version 1)
Quarter: 2013Q1

REPORT INFORMATION
  Report Type: Report from Study
  Country: US (occurrence: US)
  Receive Date: 20130205
  Receipt Date: 20130205
  Transmission Date: 20140127
  Serious: Yes (Hospitalization)
  Sender: FDA-Public Use
  Company Number: US-ROCHE-1183319

PATIENT
  Age: 40 None
  Sex: Male
  Weight: 69.7 kg

DRUGS (15)
  1. VALCYTE [Suspect]
     Indication: CYTOMEGALOVIRUS INFECTION
     Route: 048
     Dates: start: 20121217
  2. NEORAL [Concomitant]
     Dosage: GOAL LEVEL 100-150
     Route: 048
  3. NEXIUM [Concomitant]
     Route: 048
  4. METHADONE [Concomitant]
     Route: 048
  5. SYNTHROID [Concomitant]
     Route: 048
  6. TESTOSTERONE [Concomitant]
     Route: 030
  7. URSODIOL [Concomitant]
     Route: 048
  8. IMODIUM A-D [Concomitant]
     Route: 048
  9. LOMOTIL [Concomitant]
     Dosage: 2 TABLETS
     Route: 048
  10. SODIUM BICARBONATE [Concomitant]
     Route: 048
  11. MARINOL (UNITED STATES) [Concomitant]
     Route: 048
  12. CALCIUM CARBONATE [Concomitant]
     Route: 048
  13. REGLAN [Concomitant]
     Route: 048
  14. DRONABINOL [Concomitant]
     Route: 048
  15. PHENERGAN [Concomitant]
     Indication: NAUSEA
     Route: 048

REACTIONS (10)
  - Drug dose omission [Unknown]
  - Abdominal pain [Recovering/Resolving]
  - Nausea [Recovering/Resolving]
  - Vomiting [Recovering/Resolving]
  - Vomiting [Recovering/Resolving]
  - Decreased appetite [Recovering/Resolving]
  - Diarrhoea [Recovering/Resolving]
  - Biliary ischaemia [Recovering/Resolving]
  - Bile duct stone [Recovered/Resolved]
  - Leukocytosis [Recovering/Resolving]
